FAERS Safety Report 7017797-7 (Version None)
Quarter: 2010Q3

REPORT INFORMATION
  Report Type: 
  Country: None (occurrence: None)
  Receive Date: 20100928
  Receipt Date: 20100916
  Transmission Date: 20110219
  Serious: Yes (Other)
  Sender: FDA-Public Use
  Company Number: US-SANOFI-AVENTIS-2010SA056258

PATIENT

DRUGS (1)
  1. FERRLECIT [Suspect]
     Route: 051

REACTIONS (1)
  - THROMBOSIS [None]
